FAERS Safety Report 21961866 (Version 1)
Quarter: 2023Q1

REPORT INFORMATION
  Report Type: Spontaneous
  Country: US (occurrence: None)
  Receive Date: 20230204
  Receipt Date: 20230204
  Transmission Date: 20230418
  Serious: No
  Sender: FDA-Public Use
  Company Number: None

PATIENT
  Age: 8 Year
  Sex: Male
  Weight: 36.45 kg

DRUGS (1)
  1. METHYLPHENIDATE HYDROCHLORIDE [Suspect]
     Active Substance: METHYLPHENIDATE HYDROCHLORIDE
     Indication: Attention deficit hyperactivity disorder
     Route: 048
     Dates: start: 20230128, end: 20230201

REACTIONS (4)
  - Product substitution issue [None]
  - Drug ineffective [None]
  - Attention deficit hyperactivity disorder [None]
  - Condition aggravated [None]

NARRATIVE: CASE EVENT DATE: 20230128
